FAERS Safety Report 6591132-0 (Version None)
Quarter: 2010Q1

REPORT INFORMATION
  Report Type: 
  Country: None (occurrence: None)
  Receive Date: 20100219
  Receipt Date: 20090326
  Transmission Date: 20100710
  Serious: No
  Sender: FDA-Public Use
  Company Number: US-BRISTOL-MYERS SQUIBB COMPANY-14561666

PATIENT
  Age: 62 Year
  Sex: Female
  Weight: 71 kg

DRUGS (3)
  1. KENALOG [Suspect]
     Indication: RASH MACULAR
     Route: 030
  2. STEROID CREAM [Suspect]
     Route: 061
  3. TYLENOL-500 [Concomitant]

REACTIONS (1)
  - RASH ERYTHEMATOUS [None]
